FAERS Safety Report 11833610 (Version 1)
Quarter: 2015Q4

REPORT INFORMATION
  Report Type: Report from Study
  Country: BE (occurrence: BE)
  Receive Date: 20151214
  Receipt Date: 20151214
  Transmission Date: 20160305
  Serious: Yes (Hospitalization, Other)
  Sender: FDA-Public Use
  Company Number: BE-OTSUKA-2015_008193

PATIENT
  Age: 20 Year
  Sex: Male

DRUGS (6)
  1. OMNIBIONTA [Concomitant]
     Active Substance: VITAMINS
     Indication: PRODUCT USED FOR UNKNOWN INDICATION
     Dosage: 1 PILL/DAY
     Route: 065
  2. TRIANAL [Concomitant]
     Indication: PRODUCT USED FOR UNKNOWN INDICATION
     Dosage: 2 X A DAY
  3. OXYBUTYNIN [Concomitant]
     Active Substance: OXYBUTYNIN
     Indication: PRODUCT USED FOR UNKNOWN INDICATION
     Dosage: 3 X 2.5/DAY
     Route: 065
  4. TEMESTA [Concomitant]
     Active Substance: LORAZEPAM
     Indication: PRODUCT USED FOR UNKNOWN INDICATION
     Dosage: 2,5 MG (IF NEEDED)
     Route: 065
  5. ARIPIPRAZOLE. [Suspect]
     Active Substance: ARIPIPRAZOLE
     Indication: SCHIZOPHRENIA
     Dosage: 400 MG, MONTHLY FOR 88 DAYS
     Route: 030
     Dates: start: 20150508
  6. PANTOMED [Concomitant]
     Active Substance: DEXPANTHENOL
     Indication: PRODUCT USED FOR UNKNOWN INDICATION
     Dosage: 2 X A DAY
     Route: 065

REACTIONS (2)
  - Psychotic disorder [Unknown]
  - Drug abuse [Unknown]

NARRATIVE: CASE EVENT DATE: 20150804
